FAERS Safety Report 7616750-X (Version None)
Quarter: 2011Q3

REPORT INFORMATION
  Report Type: 
  Country: None (occurrence: None)
  Receive Date: 20110718
  Receipt Date: 20110705
  Transmission Date: 20111222
  Serious: Yes (Hospitalization, Other)
  Sender: FDA-Public Use
  Company Number: 2006BI010491

PATIENT
  Age: 58 Year
  Sex: Male
  Weight: 97 kg

DRUGS (5)
  1. AVONEX [Suspect]
     Indication: MULTIPLE SCLEROSIS
     Route: 030
     Dates: start: 19980101, end: 20001201
  2. BACLOFEN [Concomitant]
     Indication: MUSCLE SPASMS
  3. AVONEX [Suspect]
     Route: 030
     Dates: start: 20060828
  4. AMANTIDINE [Concomitant]
     Indication: FATIGUE
  5. AVONEX [Suspect]
     Route: 030
     Dates: start: 20061001

REACTIONS (8)
  - ARTHROPATHY [None]
  - UROSTOMY COMPLICATION [None]
  - ERECTILE DYSFUNCTION [None]
  - PROSTATE CANCER [None]
  - INFLUENZA LIKE ILLNESS [None]
  - URINARY INCONTINENCE [None]
  - URETHRAL DISORDER [None]
  - OSTEOARTHRITIS [None]
